FAERS Safety Report 17335401 (Version 6)
Quarter: 2020Q1

REPORT INFORMATION
  Report Type: Report from Study
  Country: US (occurrence: US)
  Receive Date: 20200128
  Receipt Date: 20200218
  Transmission Date: 20200409
  Serious: Yes (Hospitalization)
  Sender: FDA-Public Use
  Company Number: US-EISAI MEDICAL RESEARCH-EC-2020-068936

PATIENT
  Age: 62 Year
  Sex: Female
  Weight: 68.4 kg

DRUGS (36)
  1. CRESTOR [Concomitant]
     Active Substance: ROSUVASTATIN CALCIUM
     Dates: start: 20110101
  2. MAGNESIUM SULFATE. [Concomitant]
     Active Substance: MAGNESIUM SULFATE
     Dates: start: 20160615
  3. ELIQUIS [Concomitant]
     Active Substance: APIXABAN
     Dates: start: 20190822
  4. FENTANYL. [Concomitant]
     Active Substance: FENTANYL
     Dates: start: 20191209
  5. ANCEF [Concomitant]
     Active Substance: CEFAZOLIN SODIUM
     Dates: start: 20200116, end: 20200116
  6. COMPAZINE [Concomitant]
     Active Substance: PROCHLORPERAZINE MALEATE
     Dates: start: 20200105, end: 20200105
  7. LENVATINIB [Suspect]
     Active Substance: LENVATINIB
     Route: 048
     Dates: start: 20200119, end: 20200119
  8. PROZAC [Concomitant]
     Active Substance: FLUOXETINE HYDROCHLORIDE
     Dates: start: 19980101
  9. ZOFRAN [Concomitant]
     Active Substance: ONDANSETRON HYDROCHLORIDE
     Dates: start: 20200116, end: 20200116
  10. MAGNESIUM SULFATE. [Concomitant]
     Active Substance: MAGNESIUM SULFATE
     Dates: start: 20170407
  11. IMODIUM [Concomitant]
     Active Substance: LOPERAMIDE HYDROCHLORIDE
     Dates: start: 20190426
  12. LOMOTIL [Concomitant]
     Active Substance: ATROPINE SULFATE\DIPHENOXYLATE HYDROCHLORIDE
     Dates: start: 20190506
  13. SLOW MAG [Concomitant]
     Active Substance: MAGNESIUM CHLORIDE
     Dates: start: 20190805
  14. CYANOCOBALAMIN. [Concomitant]
     Active Substance: CYANOCOBALAMIN
     Dates: start: 20191210
  15. TYLENOL [Concomitant]
     Active Substance: ACETAMINOPHEN
     Dates: start: 19750101
  16. AMILORIDE [Concomitant]
     Active Substance: AMILORIDE
     Dates: start: 20190717
  17. BENADRYL [Concomitant]
     Active Substance: DIPHENHYDRAMINE HYDROCHLORIDE
     Dates: start: 20200105, end: 20200105
  18. PROTONIX [Concomitant]
     Active Substance: PANTOPRAZOLE SODIUM
     Dates: start: 20200105, end: 20200105
  19. ZOFRAN [Concomitant]
     Active Substance: ONDANSETRON HYDROCHLORIDE
     Dates: start: 20160215
  20. FENTANYL. [Concomitant]
     Active Substance: FENTANYL
     Dates: start: 20200105, end: 20200105
  21. MORPHINE [Concomitant]
     Active Substance: MORPHINE
     Dates: start: 20200105, end: 20200105
  22. PRILOSEC [Concomitant]
     Active Substance: OMEPRAZOLE MAGNESIUM
     Dates: start: 20180405
  23. OFIRMEV [Concomitant]
     Active Substance: ACETAMINOPHEN
     Dates: start: 20200105, end: 20200106
  24. PROPOFOL. [Concomitant]
     Active Substance: PROPOFOL
     Dates: start: 20200116, end: 20200116
  25. EMEND [Concomitant]
     Active Substance: APREPITANT
     Dates: start: 20200116, end: 20200116
  26. PREDNISONE. [Concomitant]
     Active Substance: PREDNISONE
     Dates: start: 20200117, end: 20200120
  27. PEMBROLIZUMAB. [Suspect]
     Active Substance: PEMBROLIZUMAB
     Route: 041
     Dates: start: 20191213, end: 20191213
  28. ZOFRAN [Concomitant]
     Active Substance: ONDANSETRON HYDROCHLORIDE
     Dates: start: 20200116, end: 20200116
  29. EPINEPHRINE. [Concomitant]
     Active Substance: EPINEPHRINE
     Dates: start: 20200116, end: 20200116
  30. KEFLEX [Concomitant]
     Active Substance: CEPHALEXIN
     Dates: start: 20200116, end: 20200121
  31. NEURONTIN [Concomitant]
     Active Substance: GABAPENTIN
     Dates: start: 20200116, end: 20200116
  32. LENVATINIB [Suspect]
     Active Substance: LENVATINIB
     Indication: ENDOMETRIAL CANCER
     Dosage: DOSE AT A STARTING DOSE OF 20 MG, FLUCTUATED DOSAGE
     Route: 048
     Dates: start: 20190506, end: 20200113
  33. ALUMINUM HYDROXIDE, DIPHENHYDRAMINE, LIDOCAINE, MAGNESIUM, NYSTATIN [Concomitant]
     Dates: start: 20190805
  34. BACITRACIN. [Concomitant]
     Active Substance: BACITRACIN
     Dates: start: 20200116, end: 20200116
  35. PEMBROLIZUMAB. [Suspect]
     Active Substance: PEMBROLIZUMAB
     Indication: ENDOMETRIAL CANCER
     Route: 041
     Dates: start: 20190506, end: 20191028
  36. SYNTHROID [Concomitant]
     Active Substance: LEVOTHYROXINE SODIUM
     Dates: start: 20190508

REACTIONS (1)
  - Colitis [Recovered/Resolved]

NARRATIVE: CASE EVENT DATE: 20200119
